FAERS Safety Report 20744102 (Version 1)
Quarter: 2022Q2

REPORT INFORMATION
  Report Type: Spontaneous
  Country: US (occurrence: None)
  Receive Date: 20220422
  Receipt Date: 20220422
  Transmission Date: 20220721
  Serious: No
  Sender: FDA-Public Use
  Company Number: None

PATIENT
  Age: 48 Year
  Sex: Female

DRUGS (1)
  1. COPAXONE [Suspect]
     Active Substance: GLATIRAMER ACETATE
     Indication: Multiple sclerosis
     Dosage: FREQUENCY : 3 TIMES A WEEK;?
     Route: 058
     Dates: start: 20220120

REACTIONS (7)
  - Condition aggravated [None]
  - Gait disturbance [None]
  - Memory impairment [None]
  - Stress [None]
  - Rib fracture [None]
  - Atypical pneumonia [None]
  - Malaise [None]

NARRATIVE: CASE EVENT DATE: 20220401
